FAERS Safety Report 5088454-1 (Version None)
Quarter: 2006Q3

REPORT INFORMATION
  Report Type: 
  Country: None (occurrence: None)
  Receive Date: 20060822
  Receipt Date: 20060809
  Transmission Date: 20061208
  Serious: Yes (Other)
  Sender: FDA-Public Use
  Company Number: 2006097356

PATIENT
  Age: 60 Year
  Sex: Female

DRUGS (1)
  1. SULPERAZON (SULBACTAM, CEFOPERAZONE) [Suspect]
     Indication: DIABETIC FOOT
     Dosage: 3 GRAM (1.5 GRAM, 2 IN 1D), UNKNOWN

REACTIONS (1)
  - INTERNATIONAL NORMALISED RATIO INCREASED [None]
